FAERS Safety Report 6258395-2 (Version None)
Quarter: 2009Q3

REPORT INFORMATION
  Report Type: 
  Country: None (occurrence: None)
  Receive Date: 20090702
  Receipt Date: 20090702
  Transmission Date: 20100115
  Serious: No
  Sender: FDA-Public Use
  Company Number: None

PATIENT
  Age: 24 Year
  Sex: Female
  Weight: 59.8748 kg

DRUGS (1)
  1. LOSEASONIQUE [Suspect]
     Indication: PROPHYLAXIS
     Dosage: 1 PILL PER DAY PO
     Route: 048
     Dates: start: 20090607, end: 20090701

REACTIONS (3)
  - VAGINITIS BACTERIAL [None]
  - VULVOVAGINAL DRYNESS [None]
  - VULVOVAGINAL PRURITUS [None]
